FAERS Safety Report 13130702 (Version 1)
Quarter: 2017Q1

REPORT INFORMATION
  Report Type: Spontaneous
  Country: US (occurrence: US)
  Receive Date: 20170119
  Receipt Date: 20170119
  Transmission Date: 20170428
  Serious: Yes (Other)
  Sender: FDA-Public Use
  Company Number: US-PFIZER INC-2016540767

PATIENT
  Age: 48 Year
  Sex: Female
  Weight: 66.22 kg

DRUGS (3)
  1. RELPAX [Suspect]
     Active Substance: ELETRIPTAN HYDROBROMIDE
     Indication: HEADACHE
     Dosage: 40 MG, AS NEEDED
     Route: 048
     Dates: start: 2016
  2. LYRICA [Suspect]
     Active Substance: PREGABALIN
     Indication: FIBROMYALGIA
     Dosage: 200 MG, 3X/DAY
     Route: 048
  3. RELPAX [Suspect]
     Active Substance: ELETRIPTAN HYDROBROMIDE
     Indication: MIGRAINE

REACTIONS (2)
  - Breast cancer [Unknown]
  - Off label use [Unknown]

NARRATIVE: CASE EVENT DATE: 201612
